FAERS Safety Report 16619739 (Version 3)
Quarter: 2019Q3

REPORT INFORMATION
  Report Type: Spontaneous
  Country: US (occurrence: US)
  Receive Date: 20190723
  Receipt Date: 20190827
  Transmission Date: 20191004
  Serious: Yes (Other)
  Sender: FDA-Public Use
  Company Number: US-JNJFOC-20190717836

PATIENT
  Sex: Female
  Weight: 96.25 kg

DRUGS (5)
  1. DURAGESIC [Suspect]
     Active Substance: FENTANYL
     Indication: PAIN
     Route: 062
  2. DURAGESIC [Suspect]
     Active Substance: FENTANYL
     Route: 062
     Dates: end: 2019
  3. DURAGESIC [Suspect]
     Active Substance: FENTANYL
     Route: 062
     Dates: start: 2019
  4. OXYCODONE [Concomitant]
     Active Substance: OXYCODONE
     Indication: BREAKTHROUGH PAIN
  5. DURAGESIC [Suspect]
     Active Substance: FENTANYL
     Indication: PAIN
     Route: 062

REACTIONS (4)
  - Injury [Unknown]
  - Feeling abnormal [Unknown]
  - Complex regional pain syndrome [Recovering/Resolving]
  - Drug ineffective [Unknown]
